FAERS Safety Report 13978657 (Version 2)
Quarter: 2017Q4

REPORT INFORMATION
  Report Type: Spontaneous
  Country: FR (occurrence: FR)
  Receive Date: 20170915
  Receipt Date: 20171006
  Transmission Date: 20180321
  Serious: Yes (Other)
  Sender: FDA-Public Use
  Company Number: FR-MERCK KGAA-2026467

PATIENT
  Age: 38 Year
  Sex: Female
  Weight: 91 kg

DRUGS (5)
  1. MESTINON [Concomitant]
     Active Substance: PYRIDOSTIGMINE BROMIDE
     Dates: start: 201306
  2. IMUREL [Concomitant]
     Active Substance: AZATHIOPRINE SODIUM
     Dates: start: 2016
  3. LAMALINE [Concomitant]
     Active Substance: ACETAMINOPHEN\CAFFEINE\OPIUM
     Dates: start: 2016
  4. NOVOTHYROX [Suspect]
     Active Substance: LEVOTHYROXINE SODIUM
     Indication: PRODUCT USED FOR UNKNOWN INDICATION
     Route: 048
     Dates: start: 201704
  5. CORTANCYL [Concomitant]
     Active Substance: PREDNISONE
     Dates: start: 2016

REACTIONS (3)
  - Blood thyroid stimulating hormone normal [Unknown]
  - Fatigue [Not Recovered/Not Resolved]
  - Abdominal distension [Not Recovered/Not Resolved]

NARRATIVE: CASE EVENT DATE: 201705
